FAERS Safety Report 16826971 (Version 2)
Quarter: 2019Q3

REPORT INFORMATION
  Report Type: Report from Study
  Country: CN (occurrence: CN)
  Receive Date: 20190919
  Receipt Date: 20190924
  Transmission Date: 20191005
  Serious: Yes (Death, Hospitalization, Other)
  Sender: FDA-Public Use
  Company Number: CN-ASTRAZENECA-2019SF29747

PATIENT
  Age: 23631 Day
  Sex: Female
  Weight: 50 kg

DRUGS (2)
  1. IRESSA [Suspect]
     Active Substance: GEFITINIB
     Indication: LUNG ADENOCARCINOMA
     Route: 048
     Dates: start: 20190308, end: 20190819
  2. IRESSA [Suspect]
     Active Substance: GEFITINIB
     Indication: NON-SMALL CELL LUNG CANCER
     Route: 048
     Dates: start: 20190308, end: 20190819

REACTIONS (8)
  - Myocardial ischaemia [Not Recovered/Not Resolved]
  - Pleural effusion [Unknown]
  - Sinus tachycardia [Unknown]
  - Lung disorder [Unknown]
  - Hepatic function abnormal [Unknown]
  - Interstitial lung disease [Unknown]
  - Bone pain [Unknown]
  - Intra-abdominal fluid collection [Unknown]

NARRATIVE: CASE EVENT DATE: 20190418
